FAERS Safety Report 25432397 (Version 1)
Quarter: 2025Q2

REPORT INFORMATION
  Report Type: Report from Study
  Country: US (occurrence: US)
  Receive Date: 20250613
  Receipt Date: 20250613
  Transmission Date: 20250716
  Serious: Yes (Other)
  Sender: ROCHE
  Company Number: US-ROCHE-10000303811

PATIENT

DRUGS (5)
  1. ATEZOLIZUMAB [Suspect]
     Active Substance: ATEZOLIZUMAB
     Indication: Neoplasm malignant
     Route: 065
  2. CEMIPLIMAB [Suspect]
     Active Substance: CEMIPLIMAB
     Indication: Neoplasm malignant
     Route: 065
  3. NIVOLUMAB [Suspect]
     Active Substance: NIVOLUMAB
     Indication: Neoplasm malignant
     Route: 065
  4. PEMBROLIZUMAB [Suspect]
     Active Substance: PEMBROLIZUMAB
     Indication: Neoplasm malignant
     Route: 065
  5. DURVALUMAB [Suspect]
     Active Substance: DURVALUMAB
     Indication: Neoplasm malignant
     Route: 065

REACTIONS (53)
  - Colitis [Unknown]
  - Pneumonitis [Unknown]
  - Diarrhoea [Unknown]
  - Rash [Unknown]
  - Thyroid disorder [Unknown]
  - Hepatitis [Unknown]
  - Lymphocytic hypophysitis [Unknown]
  - Arthritis [Unknown]
  - Pruritus [Unknown]
  - Acute kidney injury [Unknown]
  - Systemic inflammatory response syndrome [Unknown]
  - Diabetes mellitus [Unknown]
  - Gastritis [Unknown]
  - Infusion related reaction [Unknown]
  - Myositis [Unknown]
  - Stomatitis [Unknown]
  - Abdominal pain [Unknown]
  - Autoimmune haemolytic anaemia [Unknown]
  - Brain oedema [Unknown]
  - Bronchiolitis [Unknown]
  - Carpal tunnel syndrome [Unknown]
  - Cheilitis [Unknown]
  - Chest discomfort [Unknown]
  - Conjunctivitis [Unknown]
  - Constipation [Unknown]
  - Cranial nerve paralysis [Unknown]
  - Dehydration [Unknown]
  - Dry eye [Unknown]
  - Dry mouth [Unknown]
  - Dyspnoea [Unknown]
  - Electrolyte imbalance [Unknown]
  - Gout [Unknown]
  - Guillain-Barre syndrome [Unknown]
  - Hypersensitivity [Unknown]
  - Jaundice [Unknown]
  - Keratitis [Unknown]
  - Malaise [Unknown]
  - Motor dysfunction [Unknown]
  - Myocarditis [Unknown]
  - Neutropenia [Unknown]
  - Pancreatitis [Unknown]
  - Pericarditis [Unknown]
  - Peripheral swelling [Unknown]
  - Pneumothorax [Unknown]
  - Productive cough [Unknown]
  - Pulmonary embolism [Unknown]
  - Pulmonary oedema [Unknown]
  - Sinusitis [Unknown]
  - Urinary tract infection [Unknown]
  - Vasculitis [Unknown]
  - Adrenal insufficiency [Unknown]
  - Mucosal inflammation [Unknown]
  - Pneumonia [Unknown]
